FAERS Safety Report 9960644 (Version 1)
Quarter: 2014Q1

REPORT INFORMATION
  Report Type: Report from Study
  Country: US (occurrence: US)
  Receive Date: 20140305
  Receipt Date: 20140305
  Transmission Date: 20141002
  Serious: No
  Sender: FDA-Public Use
  Company Number: US-ABBVIE-13P-163-1108732-00

PATIENT
  Age: 57 Year
  Sex: Female

DRUGS (22)
  1. HUMIRA [Suspect]
     Indication: RHEUMATOID ARTHRITIS
     Dates: start: 2013
  2. METHOTREXATE [Concomitant]
     Indication: RHEUMATOID ARTHRITIS
  3. FOLIC ACID [Concomitant]
     Indication: PRODUCT USED FOR UNKNOWN INDICATION
     Dosage: 1 TAB DAILY
  4. CELEBREX [Concomitant]
     Indication: RHEUMATOID ARTHRITIS
     Dosage: 100 MG 1 TAB IN MORNING AND 1 TAB IN EVENING
  5. HYDROXYCHLOROQUINE [Concomitant]
     Indication: RHEUMATOID ARTHRITIS
     Dosage: 1 TAB IN MORNING AND 1 TAB IN EVENING
  6. SIMVASTATIN [Concomitant]
     Indication: BLOOD CHOLESTEROL INCREASED
     Dosage: 200 MG 1 TAB AT NIGHT
  7. VENLAFAXINE [Concomitant]
     Indication: DEPRESSION
     Dosage: 150 MG 2 CAPSULES DAILY
  8. OMEPRAZOLE [Concomitant]
     Indication: GASTRIC DISORDER
     Dosage: 20 MG 1 CAPSULE TWICE DAILY
  9. ERGOCALCIFEROL [Concomitant]
     Indication: VITAMIN D DEFICIENCY
     Dosage: 50,000 IU CAPSULE DAILY
  10. HYDROCHLOROTHIAZIDE [Concomitant]
     Indication: HYPERTENSION
     Dosage: 25 MG 1 TAB DAILY
  11. TRAZODONE [Concomitant]
     Indication: INSOMNIA
     Dosage: 100 MG 1 TAB DAILY
  12. TRAZODONE [Concomitant]
     Indication: ANXIETY
  13. MEDROXYPROGESTERONE [Concomitant]
     Indication: HORMONE LEVEL ABNORMAL
     Dosage: 2.5 MG 1 TAB DAILY
  14. ENALAPRIL [Concomitant]
     Indication: HYPERTENSION
     Dosage: 20 MG 1 TAB DAILY
  15. ESTERIFIED OESTROGENS [Concomitant]
     Indication: HORMONE REPLACEMENT THERAPY
     Dosage: 1.5 MG 1 DAILY
  16. CYCLOBENZAPRINE [Concomitant]
     Indication: MUSCLE SPASMS
     Dosage: 10 MG 1 TAB THREE TIMES DAILY
  17. CYCLOBENZAPRINE [Concomitant]
     Indication: MUSCLE SPASMS
  18. POTASSIUM CHLORIDE [Concomitant]
     Indication: PRODUCT USED FOR UNKNOWN INDICATION
     Dosage: 8 MEQ 1 TAB DAILY
  19. NIACIN [Concomitant]
     Indication: BLOOD TRIGLYCERIDES INCREASED
     Dosage: 500 MG 1 TAB AT NIGHT DAILY
  20. ACETAMINOPHEN W/CODEINE [Concomitant]
     Indication: PAIN
     Dosage: 300MG/30MG 1-2 TABS EVERY 4-6 HRS AS NEEDED
  21. HYDROXYZINE PAM [Concomitant]
     Indication: HYPERSENSITIVITY
     Dosage: 25 MG 1-4 CAPSULES THREE TIMES DAILY
  22. HYDROXYZINE PAM [Concomitant]
     Indication: ANXIETY

REACTIONS (1)
  - Urinary tract infection [Recovering/Resolving]
